FAERS Safety Report 7295316-8 (Version None)
Quarter: 2011Q1

REPORT INFORMATION
  Report Type: 
  Country: None (occurrence: None)
  Receive Date: 20110203
  Receipt Date: 20110119
  Transmission Date: 20110831
  Serious: No
  Sender: FDA-Public Use
  Company Number: 2011-00021

PATIENT
  Age: 42 Year
  Sex: Male
  Weight: 86.1834 kg

DRUGS (2)
  1. ADVIL LIQUI-GELS [Concomitant]
  2. ZICAM MULTI-SYMPTOM COLD + FLU DAYTIME [Suspect]
     Dosage: Q 4 HOURS X 2 DAYS
     Dates: start: 20070101, end: 20070101

REACTIONS (2)
  - ANOSMIA [None]
  - HYPOSMIA [None]
